FAERS Safety Report 25084455 (Version 1)
Quarter: 2025Q1

REPORT INFORMATION
  Report Type: Spontaneous
  Country: TW (occurrence: TW)
  Receive Date: 20250317
  Receipt Date: 20250317
  Transmission Date: 20250408
  Serious: Yes (Hospitalization)
  Sender: PFIZER
  Company Number: TW-PFIZER INC-PV202500031652

PATIENT
  Age: 64 Year
  Sex: Female

DRUGS (7)
  1. MEROPENEM [Suspect]
     Active Substance: MEROPENEM
     Indication: Urinary tract infection
     Dosage: 1 G, 2X/DAY
     Route: 042
     Dates: start: 20250211, end: 20250217
  2. MEROPENEM [Suspect]
     Active Substance: MEROPENEM
     Indication: Emphysematous cystitis
  3. DICLOFENAC SODIUM [Suspect]
     Active Substance: DICLOFENAC SODIUM
     Indication: Pyrexia
     Route: 054
     Dates: start: 20250212, end: 20250212
  4. DICLOFENAC SODIUM [Suspect]
     Active Substance: DICLOFENAC SODIUM
     Route: 054
     Dates: start: 20250214, end: 20250214
  5. TARGOCID [Concomitant]
     Active Substance: TEICOPLANIN
     Indication: Urinary tract infection
     Dates: start: 20250211, end: 20250214
  6. TARGOCID [Concomitant]
     Active Substance: TEICOPLANIN
     Indication: Emphysematous cystitis
  7. ACETAMINOPHEN [Concomitant]
     Active Substance: ACETAMINOPHEN
     Dates: start: 20250212

REACTIONS (3)
  - Rash [Recovering/Resolving]
  - Feeling hot [Recovering/Resolving]
  - Pain [Recovering/Resolving]

NARRATIVE: CASE EVENT DATE: 20250214
